FAERS Safety Report 5519574-2 (Version None)
Quarter: 2007Q4

REPORT INFORMATION
  Report Type: 
  Country: None (occurrence: None)
  Receive Date: 20071116
  Receipt Date: 20071112
  Transmission Date: 20080405
  Serious: Yes (Other)
  Sender: FDA-Public Use
  Company Number: GB-BRISTOL-MYERS SQUIBB COMPANY-13981675

PATIENT
  Age: 14 Year
  Sex: Male

DRUGS (3)
  1. METHOTREXATE [Suspect]
  2. DICLOFENAC SODIUM [Suspect]
  3. PREDNISOLONE [Suspect]

REACTIONS (2)
  - HERPES ZOSTER [None]
  - RENAL FAILURE [None]
